FAERS Safety Report 10527084 (Version 2)
Quarter: 2014Q4

REPORT INFORMATION
  Report Type: Spontaneous
  Country: US (occurrence: US)
  Receive Date: 20141020
  Receipt Date: 20141020
  Transmission Date: 20150528
  Serious: Yes (Hospitalization, Other)
  Sender: FDA-Public Use
  Company Number: US-ASTRAZENECA-2012SE04335

PATIENT
  Age: 58 Year
  Sex: Male
  Weight: 108.9 kg

DRUGS (21)
  1. METOPROLOL SUCCINATE. [Suspect]
     Active Substance: METOPROLOL SUCCINATE
     Indication: CARDIAC FAILURE
     Route: 048
     Dates: start: 201207, end: 201306
  2. NEXIUM [Suspect]
     Active Substance: ESOMEPRAZOLE MAGNESIUM
     Indication: GASTROOESOPHAGEAL REFLUX DISEASE
     Route: 048
     Dates: start: 20140901
  3. NEXIUM [Suspect]
     Active Substance: ESOMEPRAZOLE MAGNESIUM
     Indication: GASTROOESOPHAGEAL REFLUX DISEASE
     Route: 048
     Dates: start: 20141001
  4. METFORMIN [Concomitant]
     Active Substance: METFORMIN HYDROCHLORIDE
     Indication: DIABETES MELLITUS
     Dates: start: 2010
  5. NORTIPTYLINE [Concomitant]
     Active Substance: NORTRIPTYLINE
     Indication: SLEEP DISORDER
     Dates: start: 201012
  6. NEXIUM [Suspect]
     Active Substance: ESOMEPRAZOLE MAGNESIUM
     Indication: GASTROOESOPHAGEAL REFLUX DISEASE
     Route: 048
     Dates: start: 2004, end: 20140901
  7. GABAPENTIN. [Concomitant]
     Active Substance: GABAPENTIN
     Indication: SLEEP DISORDER
     Dates: start: 201012
  8. MAGNESIUM CITRATE COMPLEX [Concomitant]
     Indication: SUPPLEMENTATION THERAPY
  9. SENTRUM HEART SPECIALIST [Concomitant]
     Indication: SUPPLEMENTATION THERAPY
     Dosage: TWO TIMES A DAY
  10. PRILOSEC [Suspect]
     Active Substance: OMEPRAZOLE MAGNESIUM
     Indication: GASTROOESOPHAGEAL REFLUX DISEASE
     Route: 048
  11. METOPROLOL SUCCINATE. [Suspect]
     Active Substance: METOPROLOL SUCCINATE
     Indication: CARDIAC FAILURE
     Route: 048
     Dates: start: 201306
  12. VITAMIN B12 COMPLEX [Concomitant]
     Indication: SUPPLEMENTATION THERAPY
     Dosage: TWO TIMES A DAY
  13. LISINOPRIL. [Suspect]
     Active Substance: LISINOPRIL
     Indication: HYPERTENSION
     Route: 048
     Dates: start: 2010, end: 2010
  14. VITAMIN D [Concomitant]
     Active Substance: CHOLECALCIFEROL
     Indication: SUPPLEMENTATION THERAPY
  15. PRAVASTATIN [Concomitant]
     Active Substance: PRAVASTATIN\PRAVASTATIN SODIUM
     Indication: BLOOD CHOLESTEROL ABNORMAL
     Dates: start: 2012
  16. COLACE [Concomitant]
     Active Substance: DOCUSATE SODIUM
     Indication: ABNORMAL FAECES
     Route: 048
  17. SENNA [Concomitant]
     Active Substance: SENNA LEAF\SENNOSIDES\SENNOSIDES A AND B
     Indication: ABNORMAL FAECES
     Route: 048
  18. FUROSEMIDE. [Concomitant]
     Active Substance: FUROSEMIDE
     Indication: CARDIAC FAILURE CONGESTIVE
     Dates: start: 2012
  19. GLIPIZIDE. [Concomitant]
     Active Substance: GLIPIZIDE
     Indication: DIABETES MELLITUS
     Dates: start: 2011
  20. ASPRIN [Concomitant]
     Active Substance: ASPIRIN
     Indication: CARDIAC DISORDER
  21. METOPROLOL SUCCINATE. [Suspect]
     Active Substance: METOPROLOL SUCCINATE
     Indication: CARDIAC FAILURE
     Route: 048

REACTIONS (20)
  - Infection [Recovered/Resolved]
  - Hyperhidrosis [Unknown]
  - Chest pain [Unknown]
  - Off label use [Recovered/Resolved]
  - Drug ineffective [Unknown]
  - Heart rate increased [Recovering/Resolving]
  - Neuropathy peripheral [Unknown]
  - Sensory loss [Not Recovered/Not Resolved]
  - Atrial fibrillation [Recovered/Resolved]
  - Diabetes mellitus [Unknown]
  - Aortic valve incompetence [Unknown]
  - Malaise [Recovered/Resolved with Sequelae]
  - Wheezing [Not Recovered/Not Resolved]
  - Localised infection [Unknown]
  - Cardiac valve rupture [Unknown]
  - Carpal tunnel syndrome [Not Recovered/Not Resolved]
  - Insomnia [Unknown]
  - Feeling abnormal [Unknown]
  - Gallbladder disorder [Recovered/Resolved with Sequelae]
  - Nerve injury [Unknown]

NARRATIVE: CASE EVENT DATE: 2002
